FAERS Safety Report 6300594-5 (Version None)
Quarter: 2009Q3

REPORT INFORMATION
  Report Type: 
  Country: None (occurrence: None)
  Receive Date: 20090806
  Receipt Date: 20090701
  Transmission Date: 20100115
  Serious: No
  Sender: FDA-Public Use
  Company Number: US-ABBOTT-09P-163-0583096-00

PATIENT
  Sex: Male
  Weight: 18.16 kg

DRUGS (2)
  1. DEPAKOTE ER [Suspect]
     Indication: PETIT MAL EPILEPSY
     Dosage: 125 MG IN AM  250MG IN PM
     Route: 048
     Dates: start: 20090601
  2. DEPAKOTE ER [Suspect]
     Dosage: 375 MG IN AM  375 MG IN PM
     Dates: start: 20090601

REACTIONS (2)
  - CONVULSION [None]
  - URINARY INCONTINENCE [None]
